FAERS Safety Report 23271881 (Version 1)
Quarter: 2023Q4

REPORT INFORMATION
  Report Type: Spontaneous
  Country: CN (occurrence: CN)
  Receive Date: 20231207
  Receipt Date: 20231207
  Transmission Date: 20240110
  Serious: Yes (Hospitalization, Other)
  Sender: FDA-Public Use
  Company Number: CN-HALEON-CNCH2023APC060194

PATIENT

DRUGS (3)
  1. IBUPROFEN [Suspect]
     Active Substance: IBUPROFEN
     Indication: Nasopharyngitis
     Dosage: 0.3 G, BID
     Route: 048
     Dates: start: 20231016, end: 20231017
  2. ACETAMINOPHEN\AMANTADINE HYDROCHLORIDE [Suspect]
     Active Substance: ACETAMINOPHEN\AMANTADINE HYDROCHLORIDE
     Indication: Nasopharyngitis
     Dosage: 1 DF, BID
     Route: 048
     Dates: start: 20231016, end: 20231017
  3. HERBALS [Suspect]
     Active Substance: HERBALS
     Indication: Nasopharyngitis
     Dosage: 10 MG, TID
     Route: 048
     Dates: start: 20231016, end: 20231017

REACTIONS (19)
  - Toxic epidermal necrolysis [Recovering/Resolving]
  - Drug eruption [Recovering/Resolving]
  - Rash [Recovering/Resolving]
  - Scab [Recovering/Resolving]
  - Condition aggravated [Recovering/Resolving]
  - Swollen tongue [Recovering/Resolving]
  - Lip erythema [Recovering/Resolving]
  - Lip swelling [Recovering/Resolving]
  - Oral discomfort [Recovering/Resolving]
  - Hand-foot-and-mouth disease [Recovering/Resolving]
  - Rash erythematous [Recovering/Resolving]
  - Rash vesicular [Recovering/Resolving]
  - Purulence [Recovering/Resolving]
  - Skin ulcer [Recovering/Resolving]
  - Pyrexia [Recovering/Resolving]
  - Body temperature fluctuation [Recovering/Resolving]
  - Rash pustular [Recovering/Resolving]
  - Hypophagia [Recovering/Resolving]
  - Product use in unapproved indication [Unknown]

NARRATIVE: CASE EVENT DATE: 20231001
